FAERS Safety Report 16398523 (Version 1)
Quarter: 2019Q2

REPORT INFORMATION
  Report Type: Spontaneous
  Country: US (occurrence: US)
  Receive Date: 20190606
  Receipt Date: 20190606
  Transmission Date: 20190711
  Serious: No
  Sender: FDA-Public Use
  Company Number: US-TEVA-2019-US-1050195

PATIENT
  Age: 53 Year
  Sex: Male

DRUGS (1)
  1. DILTIAZEM. [Suspect]
     Active Substance: DILTIAZEM
     Route: 065

REACTIONS (2)
  - Aggression [Unknown]
  - Fatigue [Unknown]
